FAERS Safety Report 13994904 (Version 1)
Quarter: 2017Q3

REPORT INFORMATION
  Report Type: Spontaneous
  Country: US (occurrence: US)
  Receive Date: 20170921
  Receipt Date: 20170921
  Transmission Date: 20171128
  Serious: Yes (Life-Threatening)
  Sender: FDA-Public Use
  Company Number: None

PATIENT
  Age: 70 Year
  Sex: Female

DRUGS (1)
  1. TORSEMIDE. [Suspect]
     Active Substance: TORSEMIDE
     Route: 048
     Dates: start: 20170307, end: 20170501

REACTIONS (4)
  - Condition aggravated [None]
  - Incorrect dose administered [None]
  - Renal impairment [None]
  - Drug dispensing error [None]

NARRATIVE: CASE EVENT DATE: 20170501
